FAERS Safety Report 10230255 (Version 1)
Quarter: 2014Q2

REPORT INFORMATION
  Report Type: Spontaneous
  Country: US (occurrence: None)
  Receive Date: 20140610
  Receipt Date: 20140610
  Transmission Date: 20141212
  Serious: Yes (Other)
  Sender: FDA-Public Use
  Company Number: None

PATIENT
  Age: 64 Year
  Sex: Female
  Weight: 72.58 kg

DRUGS (1)
  1. MIRVASO 0.33% GEL [Suspect]
     Indication: ROSACEA
     Dosage: SMALL AMOUNT DAILY, ONCE DAILY, APPLIED TO A SURFACE, USUALLY THE SKIN
     Dates: start: 20140415, end: 20140430

REACTIONS (1)
  - Rebound effect [None]
